FAERS Safety Report 21933326 (Version 1)
Quarter: 2023Q1

REPORT INFORMATION
  Report Type: Spontaneous
  Country: CN (occurrence: CN)
  Receive Date: 20230131
  Receipt Date: 20230131
  Transmission Date: 20230418
  Serious: Yes (Other)
  Sender: FDA-Public Use
  Company Number: CN-SUN PHARMACEUTICAL INDUSTRIES LTD-2023R1-376173

PATIENT
  Age: 28 Year
  Sex: Female
  Weight: 50 kg

DRUGS (1)
  1. DROSPIRENONE\ETHINYL ESTRADIOL [Suspect]
     Active Substance: DROSPIRENONE\ETHINYL ESTRADIOL
     Indication: Abnormal uterine bleeding
     Dosage: UNK 0.03 MG/3MG/DAY
     Route: 048

REACTIONS (3)
  - Intestinal ischaemia [Recovered/Resolved]
  - Splenic vein thrombosis [Recovered/Resolved]
  - Portosplenomesenteric venous thrombosis [Recovered/Resolved]
